FAERS Safety Report 7519383-9 (Version None)
Quarter: 2011Q2

REPORT INFORMATION
  Report Type: 
  Country: None (occurrence: None)
  Receive Date: 20110602
  Receipt Date: 20110523
  Transmission Date: 20111010
  Serious: Yes (Hospitalization, Other)
  Sender: FDA-Public Use
  Company Number: PHHY2011TR44276

PATIENT
  Age: 77 Year
  Sex: Male

DRUGS (8)
  1. SIMVASTATIN [Concomitant]
     Dosage: 20 MG, UNK
  2. BILBERRY [Interacting]
     Dosage: UNK
  3. METOPROLOL TARTRATE [Concomitant]
     Dosage: 50 MG, UNK
  4. VITAMIN B-12 [Concomitant]
     Dosage: UNK
  5. WARFARIN SODIUM [Suspect]
     Dosage: 5 MG, QD
  6. WARFARIN SODIUM [Interacting]
     Dosage: 2.5 MG, UNK
  7. TAMSULOSIN HCL [Concomitant]
     Dosage: UNK
  8. RAMIPRIL [Concomitant]
     Dosage: 2.5 MG, UNK

REACTIONS (10)
  - RECTAL HAEMORRHAGE [None]
  - DIZZINESS [None]
  - HAEMATOCRIT DECREASED [None]
  - INTERNATIONAL NORMALISED RATIO INCREASED [None]
  - ACTIVATED PARTIAL THROMBOPLASTIN TIME PROLONGED [None]
  - DRUG INTERACTION [None]
  - BLOOD PRESSURE ABNORMAL [None]
  - PROTHROMBIN TIME PROLONGED [None]
  - HEART RATE IRREGULAR [None]
  - HAEMATURIA [None]
